FAERS Safety Report 5948180-0 (Version None)
Quarter: 2008Q4

REPORT INFORMATION
  Report Type: 
  Country: None (occurrence: None)
  Receive Date: 20081111
  Receipt Date: 20081105
  Transmission Date: 20090506
  Serious: Yes (Other)
  Sender: FDA-Public Use
  Company Number: US-BAXTER-2007BH009557

PATIENT
  Age: 41 Year
  Sex: Male
  Weight: 104 kg

DRUGS (1)
  1. ADVATE [Suspect]
     Indication: BACK PAIN
     Route: 042
     Dates: start: 20071130

REACTIONS (1)
  - HAEMORRHAGE [None]
